FAERS Safety Report 11679800 (Version 3)
Quarter: 2015Q4

REPORT INFORMATION
  Report Type: Spontaneous
  Country: US (occurrence: US)
  Receive Date: 20151027
  Receipt Date: 20151110
  Transmission Date: 20160304
  Serious: No
  Sender: FDA-Public Use
  Company Number: US-ELI_LILLY_AND_COMPANY-US201011000242

PATIENT
  Age: 81 Year
  Sex: Female

DRUGS (8)
  1. FORTEO [Suspect]
     Active Substance: TERIPARATIDE
     Dosage: 20 UG, QD
     Route: 065
  2. CALCIUM WITH VITAMIN D [Concomitant]
     Active Substance: CALCIUM\VITAMIN D
  3. DIGOXIN. [Concomitant]
     Active Substance: DIGOXIN
  4. FORTEO [Suspect]
     Active Substance: TERIPARATIDE
     Dosage: 20 UG, QD
  5. FORTEO [Suspect]
     Active Substance: TERIPARATIDE
     Indication: OSTEOPOROSIS
     Dosage: 20 UG, DAILY (1/D)
     Dates: start: 20100930
  6. FUROSEMIDE. [Concomitant]
     Active Substance: FUROSEMIDE
  7. FORTEO [Suspect]
     Active Substance: TERIPARATIDE
     Dosage: 20 UG, DAILY (1/D)
  8. FORTEO [Suspect]
     Active Substance: TERIPARATIDE
     Dosage: 20 UG, QD
     Route: 065

REACTIONS (16)
  - Dizziness [Unknown]
  - Heart rate increased [Not Recovered/Not Resolved]
  - Bone pain [Recovering/Resolving]
  - Arthritis [Unknown]
  - Urinary tract infection [Unknown]
  - Myalgia [Unknown]
  - Malaise [Unknown]
  - Nervousness [Unknown]
  - Nausea [Unknown]
  - Urinary tract pain [Unknown]
  - Pain [Unknown]
  - Muscle spasms [Unknown]
  - Sleep disorder due to a general medical condition [Not Recovered/Not Resolved]
  - Muscular weakness [Unknown]
  - Constipation [Unknown]
  - Arthralgia [Not Recovered/Not Resolved]

NARRATIVE: CASE EVENT DATE: 20110118
